FAERS Safety Report 12470668 (Version 2)
Quarter: 2016Q2

REPORT INFORMATION
  Report Type: Spontaneous
  Country: FR (occurrence: FR)
  Receive Date: 20160616
  Receipt Date: 20160622
  Transmission Date: 20160815
  Serious: Yes (Disabling)
  Sender: FDA-Public Use
  Company Number: FR-ROCHE-1776502

PATIENT
  Age: 57 Year
  Sex: Male
  Weight: 75 kg

DRUGS (1)
  1. ACTILYSE [Suspect]
     Active Substance: ALTEPLASE
     Indication: ISCHAEMIC STROKE
     Route: 042
     Dates: start: 20150702, end: 20150702

REACTIONS (4)
  - Visual field defect [Not Recovered/Not Resolved]
  - Cerebral haemorrhage [Not Recovered/Not Resolved]
  - NIH stroke scale score decreased [Unknown]
  - Neurologic neglect syndrome [Not Recovered/Not Resolved]

NARRATIVE: CASE EVENT DATE: 20150703
